FAERS Safety Report 4789426-4 (Version None)
Quarter: 2005Q4

REPORT INFORMATION
  Report Type: 
  Country: None (occurrence: None)
  Receive Date: 20051005
  Receipt Date: 20051005
  Transmission Date: 20060501
  Serious: Yes (Hospitalization)
  Sender: FDA-Public Use
  Company Number: None

PATIENT
  Age: 85 Year
  Sex: Female

DRUGS (7)
  1. MEMANTINE HCL [Suspect]
     Indication: DEMENTIA
     Dosage: 10 MG PO QD [LONGTIME]
     Route: 048
  2. CARVEDILOL [Concomitant]
  3. FUROSEMIDE [Concomitant]
  4. ASPIRIN [Concomitant]
  5. REPAGLINIDE [Concomitant]
  6. GLUCOTROL [Concomitant]
  7. POTASSIUM [Concomitant]

REACTIONS (4)
  - BACK PAIN [None]
  - CONFUSIONAL STATE [None]
  - DIZZINESS [None]
  - FALL [None]
